FAERS Safety Report 18255535 (Version 2)
Quarter: 2020Q3

REPORT INFORMATION
  Report Type: Spontaneous
  Country: US (occurrence: US)
  Receive Date: 20200910
  Receipt Date: 20200917
  Transmission Date: 20201103
  Serious: No
  Sender: FDA-Public Use
  Company Number: US-009507513-2009USA003438

PATIENT
  Sex: Female

DRUGS (1)
  1. HYZAAR [Suspect]
     Active Substance: HYDROCHLOROTHIAZIDE\LOSARTAN POTASSIUM
     Dosage: 50?12.5 MG
     Route: 048

REACTIONS (4)
  - Diarrhoea [Unknown]
  - Product physical issue [Unknown]
  - Product shape issue [Unknown]
  - Abdominal discomfort [Unknown]
